FAERS Safety Report 9160989 (Version 1)
Quarter: 2013Q1

REPORT INFORMATION
  Report Type: Report from Study
  Country: ES (occurrence: ES)
  Receive Date: 20130313
  Receipt Date: 20130313
  Transmission Date: 20140127
  Serious: Yes (Death)
  Sender: FDA-Public Use
  Company Number: ES-INCYTE CORPORATION-2013IN000418

PATIENT
  Age: 70 Year
  Sex: Male
  Weight: 70 kg

DRUGS (1)
  1. INC424 [Suspect]
     Dosage: 15 MG, BID
     Route: 048
     Dates: start: 20121011

REACTIONS (1)
  - Cardiac tamponade [Fatal]
